FAERS Safety Report 10085919 (Version 1)
Quarter: 2014Q2

REPORT INFORMATION
  Report Type: Spontaneous
  Country: US (occurrence: None)
  Receive Date: 20140416
  Receipt Date: 20140416
  Transmission Date: 20141212
  Serious: Yes (Other)
  Sender: FDA-Public Use
  Company Number: 2014SA031564

PATIENT
  Sex: Female

DRUGS (1)
  1. AUBAGIO [Suspect]
     Indication: MULTIPLE SCLEROSIS
     Route: 048
     Dates: start: 20140225

REACTIONS (7)
  - Pneumonia [None]
  - Oral pain [None]
  - Sleep apnoea syndrome [None]
  - Thyroid neoplasm [None]
  - Pruritus generalised [None]
  - Lip swelling [None]
  - Stomatitis [None]
